FAERS Safety Report 8925064 (Version 1)
Quarter: 2012Q4

REPORT INFORMATION
  Report Type: 
  Country: US (occurrence: US)
  Receive Date: 20121126
  Receipt Date: 20121126
  Transmission Date: 20130627
  Serious: Yes (Death)
  Sender: FDA-Public Use
  Company Number: US-ELI_LILLY_AND_COMPANY-US201211005183

PATIENT
  Age: 54 Year
  Sex: Female

DRUGS (2)
  1. ALIMTA [Suspect]
     Dosage: UNK
     Route: 042
     Dates: start: 201009, end: 20110917
  2. GEMZAR [Suspect]
     Dosage: UNK
     Route: 042
     Dates: start: 201110, end: 201111

REACTIONS (1)
  - Death [Fatal]
